FAERS Safety Report 4368223-8 (Version None)
Quarter: 2004Q2

REPORT INFORMATION
  Report Type: 
  Country: None (occurrence: None)
  Receive Date: 20040525
  Receipt Date: 20040512
  Transmission Date: 20050107
  Serious: Yes (Death)
  Sender: FDA-Public Use
  Company Number: 163-20785-04050304

PATIENT
  Age: 60 Year
  Sex: Male

DRUGS (8)
  1. THALOMID [Suspect]
     Indication: MULTIPLE MYELOMA
     Dosage: 200 MG, QHS, ORAL
     Route: 048
     Dates: start: 20020601
  2. DEXAMETHASONE [Suspect]
     Indication: MULTIPLE MYELOMA
     Dosage: 12 MG, QD X4 FOR 28 DAYS, ORAL
     Route: 048
     Dates: start: 20020601
  3. CISPLATIN [Suspect]
     Indication: MULTIPLE MYELOMA
     Dates: start: 20020601
  4. ADRIAMYCIN PFS [Suspect]
     Indication: MULTIPLE MYELOMA
     Dates: start: 20020601
  5. CYCLOPHOSPHAMIDE [Suspect]
     Indication: MULTIPLE MYELOMA
     Dates: start: 20020601
  6. ETOPOSIDE [Suspect]
     Indication: MULTIPLE MYELOMA
     Dates: start: 20020601
  7. INSULIN [Concomitant]
  8. ANTIBIOTICS (ANTIBIOTICS) [Concomitant]

REACTIONS (9)
  - ACUTE MYELOID LEUKAEMIA [None]
  - ALOPECIA [None]
  - ANAEMIA [None]
  - C-REACTIVE PROTEIN INCREASED [None]
  - FATIGUE [None]
  - HYPOMAGNESAEMIA [None]
  - NEPHROPATHY [None]
  - OEDEMA PERIPHERAL [None]
  - WEIGHT INCREASED [None]
